FAERS Safety Report 7983703-1 (Version None)
Quarter: 2011Q4

REPORT INFORMATION
  Report Type: 
  Country: None (occurrence: None)
  Receive Date: 20111215
  Receipt Date: 20111207
  Transmission Date: 20120403
  Serious: No
  Sender: FDA-Public Use
  Company Number: US-B.I. PHARMACEUTICALS,INC./RIDGEFIELD-2011-BP-18243BP

PATIENT
  Sex: Female
  Weight: 90.72 kg

DRUGS (44)
  1. TRILIPIX [Concomitant]
     Dosage: 135 MG
     Route: 048
     Dates: start: 20110203
  2. LOVAZA [Concomitant]
     Dosage: 4 G
     Route: 048
     Dates: start: 20110630
  3. ALBUTEROL INHALER [Concomitant]
     Route: 055
     Dates: start: 20110505
  4. POTASSIUM CHLORIDE [Concomitant]
     Indication: MINERAL SUPPLEMENTATION
     Dosage: 99 MG
     Route: 048
  5. ATARAX [Concomitant]
  6. BENADRYL [Concomitant]
  7. IRON [Concomitant]
     Dosage: 1300 MG
  8. METFORMIN HCL [Concomitant]
  9. CEFTIN [Concomitant]
     Route: 055
     Dates: start: 20110526
  10. OMEPRAZOLE [Concomitant]
     Indication: GASTROOESOPHAGEAL REFLUX DISEASE
     Dosage: 40 MG
     Route: 048
     Dates: start: 20110203
  11. ATROVENT [Concomitant]
     Indication: BRONCHITIS
     Dosage: 17 MCG
     Route: 055
     Dates: start: 20101101
  12. FLUTICASONE PROPIONATE [Concomitant]
     Indication: BRONCHITIS
     Route: 055
     Dates: start: 20101101
  13. GABAPENTIN [Concomitant]
     Dosage: 600 MG
     Dates: start: 20110203
  14. ALLEGRA [Concomitant]
     Dosage: 180 MG
  15. SYNTHROID [Concomitant]
     Indication: SUPPLEMENTATION THERAPY
     Dosage: 112 MCG
     Route: 048
     Dates: start: 20110203
  16. MAGNESIUM SULFATE [Concomitant]
     Indication: MINERAL SUPPLEMENTATION
     Dosage: 250 MG
     Route: 048
  17. CALCIUM+D [Concomitant]
     Route: 048
     Dates: start: 20100624
  18. VENTOLIN [Concomitant]
     Dates: start: 20110203
  19. LOVAZA [Concomitant]
     Dosage: 2 MG
     Route: 048
  20. ALBUTEROL INHALER [Concomitant]
     Indication: BRONCHITIS
     Route: 055
     Dates: start: 20101101
  21. TRADJENTA [Suspect]
     Indication: TYPE 2 DIABETES MELLITUS
     Dosage: 5 MG
     Route: 048
     Dates: end: 20110714
  22. METOPROLOL TARTRATE [Concomitant]
     Indication: BLOOD PRESSURE
     Dosage: 50 MG
     Route: 048
     Dates: start: 20110203
  23. MULTI-VITAMIN [Concomitant]
     Indication: VITAMIN SUPPLEMENTATION
     Route: 048
  24. SENNA [Concomitant]
  25. ACTOS [Concomitant]
     Dosage: 30 MG
  26. CEFTIN [Concomitant]
  27. ASCORBIC ACID [Concomitant]
     Indication: VITAMIN SUPPLEMENTATION
     Dosage: 1000 MG
     Route: 048
     Dates: start: 20100624
  28. VITAMIN D [Concomitant]
     Indication: VITAMIN SUPPLEMENTATION
     Dosage: 2000 MG
     Route: 048
  29. SOVAGA [Concomitant]
     Dosage: 1 G
  30. FLEXAMIN [Concomitant]
     Dosage: 60 MG
  31. ASPIRIN [Concomitant]
     Indication: PAIN
     Dosage: 325 MG
     Route: 048
     Dates: start: 20110203
  32. PRAVACHOL [Concomitant]
     Indication: BLOOD CHOLESTEROL
     Dosage: 20 MG
     Route: 048
     Dates: start: 20110203
  33. GLUCOPHAGE [Concomitant]
     Indication: TYPE 2 DIABETES MELLITUS
     Dosage: 2000 MG
     Route: 048
     Dates: start: 20100311
  34. FLOVENT [Concomitant]
     Indication: BRONCHITIS
     Route: 055
     Dates: start: 20110630
  35. FLOVENT [Concomitant]
     Route: 055
     Dates: start: 20110526
  36. ATROVENT [Concomitant]
     Dosage: 17 MCG
     Route: 055
     Dates: start: 20110526
  37. CEFUROXIME [Concomitant]
  38. NASONEX [Concomitant]
  39. HYPER-SOL [Concomitant]
     Route: 055
     Dates: start: 20110526
  40. IBUPROFEN [Concomitant]
  41. CETIRIZINE HCL [Concomitant]
  42. MIRALAX [Concomitant]
  43. STOOL SOFTENER [Concomitant]
  44. HYPER-SOL [Concomitant]

REACTIONS (5)
  - BLISTER [None]
  - RASH GENERALISED [None]
  - SKIN EXFOLIATION [None]
  - ECZEMA [None]
  - RASH PRURITIC [None]
